FAERS Safety Report 21337692 (Version 4)
Quarter: 2024Q4

REPORT INFORMATION
  Report Type: Report from Study
  Country: GB (occurrence: GB)
  Receive Date: 20220915
  Receipt Date: 20241118
  Transmission Date: 20250115
  Serious: Yes (Other)
  Sender: NOVARTIS
  Company Number: GB-NOVARTISPH-NVSC2022GB206991

PATIENT

DRUGS (2)
  1. PLUVICTO [Suspect]
     Active Substance: LUTETIUM LU-177 VIPIVOTIDE TETRAXETAN
     Indication: Hormone-refractory prostate cancer
     Dosage: UNK (RECEIVED 1 DOSE) CYCLIC (CYCLE (1)
     Route: 042
     Dates: start: 20220812, end: 20220812
  2. PLUVICTO [Suspect]
     Active Substance: LUTETIUM LU-177 VIPIVOTIDE TETRAXETAN
     Dosage: UNK, CYCLIC (CYCLE (2))
     Route: 042
     Dates: start: 20220914, end: 20220914

REACTIONS (11)
  - Myelosuppression [Unknown]
  - Pancytopenia [Unknown]
  - Dyspnoea [Recovering/Resolving]
  - Performance status decreased [Recovering/Resolving]
  - Fatigue [Recovering/Resolving]
  - Anaemia [Recovering/Resolving]
  - Platelet count decreased [Unknown]
  - Prostatic specific antigen abnormal [Unknown]
  - Haemoglobin abnormal [Unknown]
  - Blood alkaline phosphatase abnormal [Unknown]
  - Blood creatinine abnormal [Unknown]
